FAERS Safety Report 8192293-2 (Version None)
Quarter: 2012Q1

REPORT INFORMATION
  Report Type: 
  Country: None (occurrence: None)
  Receive Date: 20120307
  Receipt Date: 20120302
  Transmission Date: 20120608
  Serious: Yes (Hospitalization)
  Sender: FDA-Public Use
  Company Number: IT-AMGEN-ITACT2012013836

PATIENT
  Age: 60 Year
  Sex: Male
  Weight: 58 kg

DRUGS (5)
  1. FLUOROURACIL [Concomitant]
     Dosage: 3840 MG, UNK
     Dates: start: 20110919
  2. OXALIPLATIN [Concomitant]
     Dosage: 136 MG, UNK
     Dates: start: 20110919
  3. PANITUMUMAB [Suspect]
     Indication: COLORECTAL CANCER METASTATIC
     Dosage: 348 MG, UNK
     Dates: start: 20110919
  4. IRINOTECAN HCL [Concomitant]
     Dosage: 240 MG, UNK
     Dates: start: 20110919
  5. LEUCOVORIN CALCIUM [Concomitant]
     Dosage: 320 MG, UNK
     Dates: start: 20110919

REACTIONS (1)
  - INTESTINAL OBSTRUCTION [None]
